FAERS Safety Report 5368927-4 (Version None)
Quarter: 2007Q2

REPORT INFORMATION
  Report Type: 
  Country: None (occurrence: None)
  Receive Date: 20070625
  Receipt Date: 20061110
  Transmission Date: 20071010
  Serious: No
  Sender: FDA-Public Use
  Company Number: US-ASTRAZENECA-2006UW23436

PATIENT
  Age: 71 Year
  Sex: Male
  Weight: 90.7 kg

DRUGS (7)
  1. CRESTOR [Suspect]
     Indication: BLOOD CHOLESTEROL INCREASED
     Route: 048
     Dates: start: 20050101
  2. ACTOS [Concomitant]
  3. TOPROL-XL [Concomitant]
  4. ZETIA [Concomitant]
  5. FLOMAX [Concomitant]
  6. FINASTERIDE [Concomitant]
  7. ECOTRIN [Concomitant]

REACTIONS (4)
  - DIZZINESS [None]
  - MUSCULAR WEAKNESS [None]
  - PAIN [None]
  - VISION BLURRED [None]
